FAERS Safety Report 19308893 (Version 2)
Quarter: 2021Q2

REPORT INFORMATION
  Report Type: Report from Study
  Country: US (occurrence: US)
  Receive Date: 20210526
  Receipt Date: 20210610
  Transmission Date: 20210717
  Serious: Yes (Death, Other)
  Sender: FDA-Public Use
  Company Number: US-ACADIA PHARMACEUTICALS INC.-ACA-2021-PIM-001796

PATIENT
  Age: 74 Year
  Sex: Female

DRUGS (5)
  1. CARBIDOPA. [Concomitant]
     Active Substance: CARBIDOPA
     Dosage: 50 MILLIGRAM
  2. NUPLAZID [Suspect]
     Active Substance: PIMAVANSERIN TARTRATE
     Indication: PARKINSON^S DISEASE
     Dosage: 34 MILLIGRAM, QD
     Route: 048
     Dates: end: 20210408
  3. NUPLAZID [Suspect]
     Active Substance: PIMAVANSERIN TARTRATE
     Dosage: UNK
  4. LEVODOPA [Concomitant]
     Active Substance: LEVODOPA
     Dosage: 200 MILLIGRAM
  5. OLANZAPINE. [Concomitant]
     Active Substance: OLANZAPINE
     Dosage: 5 MILLIGRAM, BID

REACTIONS (1)
  - Respiratory arrest [Recovered/Resolved]

NARRATIVE: CASE EVENT DATE: 20210408
